FAERS Safety Report 9058768 (Version 2)
Quarter: 2013Q1

REPORT INFORMATION
  Report Type: Report from Study
  Country: JP (occurrence: JP)
  Receive Date: 20130131
  Receipt Date: 20130131
  Transmission Date: 20140127
  Serious: Yes (Hospitalization)
  Sender: FDA-Public Use
  Company Number: JP-GLAXOSMITHKLINE-B0820105A

PATIENT
  Age: 34 None
  Sex: Female

DRUGS (7)
  1. GSK1550188 [Suspect]
     Indication: SYSTEMIC LUPUS ERYTHEMATOSUS
     Dates: start: 20120712, end: 20120712
  2. BETAMETHASONE [Concomitant]
     Indication: SYSTEMIC LUPUS ERYTHEMATOSUS
     Dosage: .8MG PER DAY
     Route: 048
     Dates: start: 20100301, end: 20120726
  3. CICLOSPORIN [Concomitant]
     Indication: SYSTEMIC LUPUS ERYTHEMATOSUS
     Dosage: 75MG TWICE PER DAY
     Route: 048
     Dates: start: 20101208, end: 20120727
  4. TOCOPHEROL NICOTINATE [Concomitant]
     Indication: HYPERLIPIDAEMIA
     Dosage: 200MG PER DAY
     Route: 048
     Dates: start: 20100126
  5. ACETAMINOPHEN [Concomitant]
     Indication: SYSTEMIC LUPUS ERYTHEMATOSUS
     Route: 048
     Dates: start: 20120611, end: 20120722
  6. LOXOPROFEN SODIUM [Concomitant]
     Indication: SYSTEMIC LUPUS ERYTHEMATOSUS
     Dosage: 60MG TWO TIMES PER WEEK
     Route: 048
     Dates: start: 20120723
  7. SENNA [Concomitant]
     Indication: CONSTIPATION
     Route: 048
     Dates: start: 20120629

REACTIONS (2)
  - Aspartate aminotransferase increased [Recovered/Resolved]
  - Alanine aminotransferase increased [Recovered/Resolved]
